FAERS Safety Report 9821136 (Version 1)
Quarter: 2014Q1

REPORT INFORMATION
  Report Type: Spontaneous
  Country: NL (occurrence: NL)
  Receive Date: 20140116
  Receipt Date: 20140116
  Transmission Date: 20141002
  Serious: Yes (Other)
  Sender: FDA-Public Use
  Company Number: NL-IPSEN BIOPHARMACEUTICALS, INC.-2014-0184

PATIENT
  Age: 27 Year
  Sex: Female

DRUGS (1)
  1. SOMATULINE AUTOSOLUTION 90MG [Suspect]
     Indication: ACROMEGALY
     Dosage: 90 MG
     Route: 058
     Dates: start: 20121227

REACTIONS (1)
  - Neoplasm progression [Not Recovered/Not Resolved]
